FAERS Safety Report 8222277-7 (Version None)
Quarter: 2012Q1

REPORT INFORMATION
  Report Type: 
  Country: None (occurrence: None)
  Receive Date: 20120320
  Receipt Date: 20120313
  Transmission Date: 20120608
  Serious: Yes (Other)
  Sender: FDA-Public Use
  Company Number: US-GLAXOSMITHKLINE-A0970382A

PATIENT
  Age: 44 Year
  Sex: Female

DRUGS (13)
  1. BACTRIM [Concomitant]
  2. NEUPOGEN [Suspect]
     Indication: PRODUCT USED FOR UNKNOWN INDICATION
     Route: 065
     Dates: start: 20111009, end: 20111016
  3. ACYCLOVIR [Concomitant]
  4. FOLIC ACID [Concomitant]
  5. KLONOPIN [Concomitant]
  6. MELPHALAN HYDROCHLORIDE [Suspect]
     Indication: BONE MARROW TRANSPLANT
     Route: 042
     Dates: start: 20111001, end: 20111002
  7. LITHIUM CARBONATE [Concomitant]
  8. MAGNESIUM [Concomitant]
  9. MULTI-VITAMIN [Concomitant]
  10. HALDOL [Concomitant]
  11. PAXIL [Concomitant]
  12. DEPAKOTE [Concomitant]
  13. GEODON [Concomitant]

REACTIONS (10)
  - VOMITING [None]
  - MUCOSAL INFLAMMATION [None]
  - NEUTROPENIA [None]
  - LOBAR PNEUMONIA [None]
  - DIARRHOEA [None]
  - FLUID OVERLOAD [None]
  - NAUSEA [None]
  - PYREXIA [None]
  - HYPERNATRAEMIA [None]
  - INTERNATIONAL NORMALISED RATIO INCREASED [None]
